FAERS Safety Report 7285411-1 (Version None)
Quarter: 2011Q1

REPORT INFORMATION
  Report Type: 
  Country: None (occurrence: None)
  Receive Date: 20110121
  Receipt Date: 20060510
  Transmission Date: 20110831
  Serious: No
  Sender: FDA-Public Use
  Company Number: 050

PATIENT
  Sex: Female
  Weight: 68.0396 kg

DRUGS (4)
  1. FAZACLO ODT [Suspect]
     Indication: SCHIZOAFFECTIVE DISORDER
     Dosage: 500 MG PO DAILY
     Route: 048
     Dates: start: 20060420, end: 20060424
  2. CYMBALTA [Concomitant]
  3. DEPAKOTE ER [Concomitant]
  4. REMERON [Concomitant]

REACTIONS (1)
  - DIARRHOEA [None]
